FAERS Safety Report 12649807 (Version 1)
Quarter: 2016Q3

REPORT INFORMATION
  Report Type: Spontaneous
  Country: CN (occurrence: CN)
  Receive Date: 20160812
  Receipt Date: 20160812
  Transmission Date: 20161109
  Serious: Yes (Hospitalization, Other)
  Sender: FDA-Public Use
  Company Number: CN-GILEAD-2016-0224812

PATIENT
  Sex: Male

DRUGS (3)
  1. HEPSERA [Suspect]
     Active Substance: ADEFOVIR DIPIVOXIL
     Indication: HEPATIC CIRRHOSIS
     Dosage: 10 MG, QD
     Route: 048
     Dates: start: 2004
  2. INSULIN [Suspect]
     Active Substance: INSULIN NOS
     Indication: DIABETES MELLITUS
     Dosage: 5 DF, BID
     Route: 042
  3. INSULIN [Suspect]
     Active Substance: INSULIN NOS
     Dosage: 5 UNITS BID
     Route: 042

REACTIONS (7)
  - Gout [Not Recovered/Not Resolved]
  - Stomatitis [Recovering/Resolving]
  - Off label use [Unknown]
  - Lip and/or oral cavity cancer [Recovering/Resolving]
  - Oral mucosal blistering [Recovering/Resolving]
  - Oedema mouth [Recovering/Resolving]
  - Dysphagia [Recovering/Resolving]

NARRATIVE: CASE EVENT DATE: 2004
